FAERS Safety Report 6717769-3 (Version None)
Quarter: 2010Q2

REPORT INFORMATION
  Report Type: 
  Country: None (occurrence: None)
  Receive Date: 20100510
  Receipt Date: 20100430
  Transmission Date: 20101027
  Serious: Yes (Hospitalization)
  Sender: FDA-Public Use
  Company Number: GXKR2010JP04909

PATIENT
  Age: 79 Year
  Sex: Female

DRUGS (5)
  1. FLUOROURACIL [Suspect]
     Indication: COLON CANCER METASTATIC
     Dosage: 2000 MG/M2 AS A 46-HOUR INFUSION EVERY 2 WEEKS
     Route: 065
  2. FLUOROURACIL [Suspect]
     Dosage: THREE MORE COURSES; TREATMENT REDUCED TO 1200 MG/M2
  3. OXALIPLATIN [Concomitant]
     Indication: COLON CANCER METASTATIC
     Route: 065
  4. OXALIPLATIN [Concomitant]
     Dosage: THREE MORE COURSES
     Route: 065
  5. FOLINIC ACID [Concomitant]
     Indication: COLON CANCER METASTATIC
     Dosage: THREE MORE COURSES
     Route: 065

REACTIONS (2)
  - ALTERED STATE OF CONSCIOUSNESS [None]
  - HYPERAMMONAEMIA [None]
